FAERS Safety Report 9048956 (Version 4)
Quarter: 2013Q1

REPORT INFORMATION
  Report Type: Spontaneous
  Country: JP (occurrence: JP)
  Receive Date: 20130204
  Receipt Date: 20130327
  Transmission Date: 20140127
  Serious: Yes (Death)
  Sender: FDA-Public Use
  Company Number: JP-GENZYME-CERZ-1002799

PATIENT
  Age: 6 None
  Sex: Male
  Weight: 14 kg

DRUGS (14)
  1. CEREZYME [Suspect]
     Indication: GAUCHER^S DISEASE
     Dosage: 71.4 U/KG, Q2W
     Route: 042
     Dates: start: 20080730, end: 20130121
  2. SODIUM VALPROATE [Concomitant]
     Indication: EPILEPSY
     Dosage: 220 MG, TID
     Route: 048
     Dates: start: 20080320
  3. TOPIRAMATE [Concomitant]
     Indication: EPILEPSY
     Dosage: 67.5 MG, BID
     Route: 048
     Dates: start: 20080728
  4. PHENOBARBITAL [Concomitant]
     Indication: EPILEPSY
     Dosage: 37 MG, BID
     Route: 048
     Dates: start: 20081001
  5. LAMOTRIGINE [Concomitant]
     Indication: EPILEPSY
     Dosage: 10 MG, BID
     Route: 048
     Dates: start: 20081226
  6. CLONAZEPAM [Concomitant]
     Indication: EPILEPSY
     Dosage: 0.67 MG, TID
     Route: 048
     Dates: start: 20080415
  7. FUROSEMIDE [Concomitant]
     Indication: CARDIAC FAILURE
     Dosage: 0.67 MG, TID
     Route: 048
     Dates: start: 20081227
  8. SUCRALFATE [Concomitant]
     Indication: GASTRITIS
     Dosage: 0.27 G, TID
     Route: 048
     Dates: start: 20090109
  9. CLARITHROMYCIN [Concomitant]
     Indication: INFECTION PROPHYLAXIS
     Dosage: 50 MG, BID
     Route: 065
     Dates: start: 20100318
  10. AMBROXOL HYDROCHLORIDE [Concomitant]
     Indication: RESPIRATORY DISORDER
     Dosage: 5 ML, TID
     Route: 048
     Dates: start: 20080721
  11. ALFACALCIDOL [Concomitant]
     Indication: OSTEOPOROSIS
     Dosage: 1 ML, QD
     Route: 048
     Dates: start: 20090114
  12. LEVOCARNITINE [Concomitant]
     Indication: CARNITINE DEFICIENCY
     Dosage: 400 MG, BID
     Route: 048
     Dates: start: 20110530
  13. LEVOCARNITINE [Concomitant]
     Indication: MALNUTRITION
  14. POTASSIUM CITRATE [Concomitant]
     Indication: RENAL LITHIASIS PROPHYLAXIS
     Dosage: 0.33 G, TID
     Route: 048
     Dates: start: 20121226

REACTIONS (2)
  - Cardio-respiratory arrest [Fatal]
  - Disease progression [Fatal]
